FAERS Safety Report 21321338 (Version 2)
Quarter: 2022Q4

REPORT INFORMATION
  Report Type: Other
  Country: US (occurrence: US)
  Receive Date: 20220912
  Receipt Date: 20221121
  Transmission Date: 20230112
  Serious: Yes (Hospitalization)
  Sender: FDA-Public Use
  Company Number: US-GBT-016081

PATIENT
  Sex: Female
  Weight: 54 kg

DRUGS (1)
  1. OXBRYTA [Suspect]
     Active Substance: VOXELOTOR
     Indication: Product used for unknown indication

REACTIONS (5)
  - Rhinovirus infection [Unknown]
  - Product size issue [Unknown]
  - Product use complaint [Unknown]
  - Nausea [Unknown]
  - Product dose omission issue [Unknown]
